FAERS Safety Report 12219253 (Version 2)
Quarter: 2016Q2

REPORT INFORMATION
  Report Type: Spontaneous
  Country: US (occurrence: US)
  Receive Date: 20160329
  Receipt Date: 20160405
  Transmission Date: 20160815
  Serious: Yes (Hospitalization)
  Sender: FDA-Public Use
  Company Number: US-FRI-1000083574

PATIENT
  Age: 42 Year
  Sex: Female
  Weight: 48 kg

DRUGS (7)
  1. ESTRADIOL. [Concomitant]
     Active Substance: ESTRADIOL
     Indication: HYSTERECTOMY
     Dosage: 2MG
     Route: 048
  2. VALIUM [Concomitant]
     Active Substance: DIAZEPAM
     Route: 048
  3. PROZAC [Concomitant]
     Active Substance: FLUOXETINE HYDROCHLORIDE
     Dosage: 40MG
     Route: 048
  4. LINZESS [Suspect]
     Active Substance: LINACLOTIDE
     Indication: IRRITABLE BOWEL SYNDROME
     Dosage: 290MCG
     Route: 048
     Dates: start: 20151121, end: 20160316
  5. TOPAMAX [Concomitant]
     Active Substance: TOPIRAMATE
     Dosage: 200MG
     Route: 048
  6. HYDROXYZINE PAMOATE. [Concomitant]
     Active Substance: HYDROXYZINE PAMOATE
     Indication: SLEEP DISORDER
     Dosage: 50MG
     Route: 048
     Dates: start: 2015
  7. SYNTHROID [Concomitant]
     Active Substance: LEVOTHYROXINE SODIUM
     Dosage: 75MCG
     Route: 048

REACTIONS (16)
  - Hypertension [Not Recovered/Not Resolved]
  - Constipation [Recovered/Resolved]
  - Nephrolithiasis [Unknown]
  - Amnesia [Not Recovered/Not Resolved]
  - Abdominal pain [Not Recovered/Not Resolved]
  - Pharyngitis streptococcal [Unknown]
  - Malaise [Not Recovered/Not Resolved]
  - Dyskinesia [Unknown]
  - Unevaluable event [Unknown]
  - Pain [Unknown]
  - Diarrhoea [Not Recovered/Not Resolved]
  - Parathyroid disorder [Not Recovered/Not Resolved]
  - Vomiting [Recovered/Resolved]
  - Intestinal obstruction [Recovered/Resolved]
  - Dehydration [Unknown]
  - Anxiety [Unknown]

NARRATIVE: CASE EVENT DATE: 201603
